FAERS Safety Report 8054990-9 (Version None)
Quarter: 2012Q1

REPORT INFORMATION
  Report Type: 
  Country: None (occurrence: None)
  Receive Date: 20120119
  Receipt Date: 20120112
  Transmission Date: 20120608
  Serious: Yes (Other)
  Sender: FDA-Public Use
  Company Number: JP-PFIZER INC-2012009998

PATIENT
  Sex: Male

DRUGS (1)
  1. ARTANE [Suspect]
     Indication: DYSTONIA
     Dosage: 2 MG, 2X/DAY
     Route: 048
     Dates: start: 20110401

REACTIONS (3)
  - GAIT DISTURBANCE [None]
  - FALL [None]
  - MUSCULOSKELETAL DISCOMFORT [None]
